FAERS Safety Report 6370617-6 (Version None)
Quarter: 2009Q3

REPORT INFORMATION
  Report Type: 
  Country: None (occurrence: None)
  Receive Date: 20090923
  Receipt Date: 20090916
  Transmission Date: 20100115
  Serious: No
  Sender: FDA-Public Use
  Company Number: US-ELI_LILLY_AND_COMPANY-US200902007128

PATIENT
  Sex: Male
  Weight: 195.1 kg

DRUGS (19)
  1. BYETTA [Suspect]
     Indication: TYPE 2 DIABETES MELLITUS
     Dosage: 5 UG, 2/D
     Route: 058
     Dates: start: 20060425, end: 20060501
  2. BYETTA [Suspect]
     Dosage: 10 UG, 2/D
     Route: 058
     Dates: start: 20060501
  3. BYETTA [Suspect]
     Dosage: 10 UG, 2/D
     Route: 058
  4. SINGULAIR [Concomitant]
     Indication: ASTHMA
     Dosage: 10 MG, DAILY (1/D)
     Dates: start: 19980101
  5. PROTONIX [Concomitant]
     Indication: GASTROOESOPHAGEAL REFLUX DISEASE
  6. BENICAR [Concomitant]
     Indication: BLOOD PRESSURE INCREASED
     Dosage: 40 MG, UNKNOWN
  7. SULFASALAZINE [Concomitant]
     Indication: ABDOMINAL PAIN UPPER
     Dosage: 500 MG, DAILY (1/D)
     Route: 048
  8. UNIFYL [Concomitant]
     Indication: ASTHMA
     Dosage: 600 MG, DAILY (1/D)
     Route: 048
  9. POTASSIUM CHLORIDE [Concomitant]
     Indication: BLOOD POTASSIUM DECREASED
     Dosage: 20 MEQ, UNK
  10. COLCHICINE [Concomitant]
     Dosage: 0.6 MG, UNK
  11. HYDROCHLOROTHIAZIDE [Concomitant]
     Indication: BLOOD PRESSURE INCREASED
     Dosage: 25 MG, DAILY (1/D)
  12. SPIRONOLACTONE [Concomitant]
     Indication: BLOOD PRESSURE INCREASED
     Dosage: 50 MG, DAILY (1/D)
     Route: 048
  13. SPIRONOLACTONE [Concomitant]
     Dosage: 50 MG, DAILY (1/D)
     Route: 048
  14. ASPIRIN [Concomitant]
     Indication: ANTICOAGULANT THERAPY
     Dosage: 325 MG, UNK
  15. COMBIVENT [Concomitant]
     Indication: ASTHMA
     Route: 055
  16. CLOTRIMAZOLE [Concomitant]
     Dosage: UNK, AS NEEDED
  17. TRIAMCINOLONE [Concomitant]
     Indication: ORAL DISORDER
     Dosage: UNK, AS NEEDED
  18. OXYGEN [Concomitant]
     Indication: SLEEP APNOEA SYNDROME
     Dates: start: 20030101
  19. MUPIROCIN [Concomitant]
     Indication: NASAL ABSCESS

REACTIONS (8)
  - ASTHENIA [None]
  - BLOOD GLUCOSE INCREASED [None]
  - DYSGEUSIA [None]
  - FLUID RETENTION [None]
  - KIDNEY INFECTION [None]
  - LOCALISED INFECTION [None]
  - MOOD ALTERED [None]
  - NAUSEA [None]
